FAERS Safety Report 24572820 (Version 1)
Quarter: 2024Q4

REPORT INFORMATION
  Report Type: Spontaneous
  Country: US (occurrence: US)
  Receive Date: 20241101
  Receipt Date: 20241101
  Transmission Date: 20250114
  Serious: No
  Sender: Tarsus Pharmaceuticals
  Company Number: US-TARSUS PHARMACEUTICALS-TSP-US-2024-000366

PATIENT
  Age: 18 Year
  Sex: Male

DRUGS (1)
  1. XDEMVY [Suspect]
     Active Substance: LOTILANER
     Indication: Product used for unknown indication
     Dosage: 1 DROP, BID (ON EACH EYE)
     Route: 047
     Dates: start: 20240809

REACTIONS (1)
  - Instillation site swelling [Unknown]

NARRATIVE: CASE EVENT DATE: 20240809
